FAERS Safety Report 7756368-1 (Version None)
Quarter: 2011Q3

REPORT INFORMATION
  Report Type: 
  Country: None (occurrence: None)
  Receive Date: 20110916
  Receipt Date: 20110913
  Transmission Date: 20111222
  Serious: Yes (Other)
  Sender: FDA-Public Use
  Company Number: GB-ROCHE-793418

PATIENT
  Sex: Male
  Weight: 76 kg

DRUGS (5)
  1. ATENOLOL [Concomitant]
     Indication: HYPERTENSION
     Route: 048
  2. BONIVA [Suspect]
     Indication: OSTEOPOROSIS
     Dosage: 3 INFUSIONS GIVEN
     Route: 042
     Dates: start: 20080318, end: 20080918
  3. BUDESONIDE [Concomitant]
     Indication: INFLAMMATORY BOWEL DISEASE
     Route: 048
  4. LOPERAMIDE [Concomitant]
     Indication: INFLAMMATORY BOWEL DISEASE
     Route: 048
  5. ALFACALCIDOL [Concomitant]
     Indication: OSTEOPOROSIS
     Dosage: STARTED PRIOR TO IBANDRONIC ACID
     Route: 048

REACTIONS (4)
  - CHEST PAIN [None]
  - PAIN IN EXTREMITY [None]
  - ARTHRALGIA [None]
  - RENAL DISORDER [None]
